FAERS Safety Report 4590247-6 (Version None)
Quarter: 2005Q1

REPORT INFORMATION
  Report Type: 
  Country: None (occurrence: None)
  Receive Date: 20050224
  Receipt Date: 20050120
  Transmission Date: 20050727
  Serious: Yes (Other)
  Sender: FDA-Public Use
  Company Number: 200510470US

PATIENT
  Sex: Female

DRUGS (10)
  1. KETEK [Suspect]
     Indication: SINUSITIS
     Route: 048
     Dates: start: 20050112, end: 20050117
  2. CARTIA                                  /USA/ [Concomitant]
     Indication: MITRAL VALVE PROLAPSE
     Dosage: DOSE: NOT PROVIDED
  3. LASIX [Concomitant]
     Dosage: DOSE: NOT PROVIDED
  4. POTASSIUM CHLORIDE [Concomitant]
     Dosage: DOSE: NOT PROVIDED
  5. VITAMIN C [Concomitant]
     Dosage: DOSE: NOT PROVIDED
  6. VITAMINS NOS [Concomitant]
     Dosage: DOSE: NOT PROVIDED
  7. KLONOPIN [Concomitant]
     Indication: RESTLESS LEGS SYNDROME
  8. AMBIEN [Concomitant]
     Dosage: DOSE: NOT PROVIDED
  9. IMODIUM A-D [Concomitant]
     Dosage: DOSE: NOT PROVIDED
     Dates: start: 20050112
  10. TYLENOL (CAPLET) [Concomitant]
     Dosage: DOSE: NOT PROVIDED

REACTIONS (14)
  - AMNESIA [None]
  - BALANCE DISORDER [None]
  - COLOUR BLINDNESS [None]
  - CONTUSION [None]
  - FALL [None]
  - FATIGUE [None]
  - HALLUCINATION [None]
  - LOSS OF CONSCIOUSNESS [None]
  - PARANOIA [None]
  - PHOTOPSIA [None]
  - PYREXIA [None]
  - SOMNOLENCE [None]
  - VISUAL DISTURBANCE [None]
  - VISUAL FIELD DEFECT [None]
